FAERS Safety Report 17146261 (Version 1)
Quarter: 2019Q4

REPORT INFORMATION
  Report Type: Other
  Country: CA (occurrence: CA)
  Receive Date: 20191212
  Receipt Date: 20191212
  Transmission Date: 20200122
  Serious: Yes (Other)
  Sender: FDA-Public Use
  Company Number: CA-APOTEX-2019AP025874

PATIENT
  Age: 64 Year
  Sex: Male
  Weight: 92.97 kg

DRUGS (2)
  1. APO-RISPERIDONE [Suspect]
     Active Substance: RISPERIDONE
     Indication: DEPRESSION
     Dosage: UNK, QD
     Route: 048
  2. APO-RISPERIDONE [Suspect]
     Active Substance: RISPERIDONE
     Indication: ANXIETY

REACTIONS (5)
  - Anxiety [Recovered/Resolved]
  - Depression [Recovered/Resolved]
  - Paranoia [Recovered/Resolved]
  - Self-injurious ideation [Recovered/Resolved]
  - Suicidal ideation [Recovered/Resolved]
